FAERS Safety Report 5026858-3 (Version None)
Quarter: 2006Q2

REPORT INFORMATION
  Report Type: 
  Country: None (occurrence: None)
  Receive Date: 20060501
  Receipt Date: 20060208
  Transmission Date: 20061013
  Serious: No
  Sender: FDA-Public Use
  Company Number: 200610760BWH

PATIENT
  Age: 66 Year
  Sex: Male

DRUGS (5)
  1. NEXAVAR [Suspect]
     Indication: RENAL CELL CARCINOMA STAGE UNSPECIFIED
     Dosage: 400 MG, BID, ORAL
     Route: 048
     Dates: start: 20060129
  2. ANTIBIOTIC [Concomitant]
  3. VICODIN [Concomitant]
  4. TOPROL-XL [Concomitant]
  5. MEGESTROL [Concomitant]

REACTIONS (4)
  - BLOODY DISCHARGE [None]
  - HAEMOPTYSIS [None]
  - HYPOAESTHESIA [None]
  - PARAESTHESIA [None]
